FAERS Safety Report 5380267-6 (Version None)
Quarter: 2007Q3

REPORT INFORMATION
  Report Type: 
  Country: None (occurrence: None)
  Receive Date: 20070706
  Receipt Date: 20070626
  Transmission Date: 20080115
  Serious: Yes (Hospitalization)
  Sender: FDA-Public Use
  Company Number: FR-AMGEN-US232347

PATIENT
  Sex: Female

DRUGS (2)
  1. ENBREL [Suspect]
     Indication: RHEUMATOID ARTHRITIS
     Dosage: LYOPHILIZED (25 MG 2 TIMES WEEKLY)
     Route: 058
     Dates: start: 20041122
  2. ENBREL [Suspect]
     Dosage: PRE-FILLED SYRINGE (25 MG 2 TIMES WEEKLY)
     Route: 058
     Dates: start: 20070101

REACTIONS (2)
  - DEMYELINATION [None]
  - QUADRIPLEGIA [None]
